FAERS Safety Report 5258537-1 (Version None)
Quarter: 2007Q1

REPORT INFORMATION
  Report Type: 
  Country: None (occurrence: None)
  Receive Date: 20070301
  Receipt Date: 20070124
  Transmission Date: 20070707
  Serious: Yes (Other)
  Sender: FDA-Public Use
  Company Number: THYM-11222

PATIENT
  Age: 24 Year
  Sex: Female
  Weight: 48 kg

DRUGS (9)
  1. THYMOGLOBULIN [Suspect]
     Indication: STEM CELL TRANSPLANT
     Dosage: 1.5 MG/KG QD IV
     Route: 042
     Dates: start: 20070122, end: 20070122
  2. THYMOGLOBULIN [Suspect]
     Indication: STEM CELL TRANSPLANT
     Dosage: 1.5 MG/KG QD IV
     Route: 042
     Dates: start: 20070124, end: 20070125
  3. AVELOX [Concomitant]
  4. TACROLIMUS [Concomitant]
  5. DILANTIN [Concomitant]
  6. PROTONIX [Concomitant]
  7. FLUDARABINE [Concomitant]
  8. LEXAPRO [Concomitant]
  9. ACETAMINOPHEN [Concomitant]

REACTIONS (3)
  - PRURITUS [None]
  - RASH [None]
  - URTICARIA [None]
